FAERS Safety Report 4366722-6 (Version None)
Quarter: 2004Q2

REPORT INFORMATION
  Report Type: 
  Country: None (occurrence: None)
  Receive Date: 20040527
  Receipt Date: 20040514
  Transmission Date: 20050107
  Serious: Yes (Other)
  Sender: FDA-Public Use
  Company Number: GB-MERCK-0405GBR00115

PATIENT
  Age: 71 Year
  Sex: Male

DRUGS (2)
  1. BENDROFLUMETHIAZIDE [Concomitant]
     Indication: HYPERTENSION
     Route: 065
     Dates: start: 20010501
  2. PROSCAR [Suspect]
     Indication: BENIGN PROSTATIC HYPERPLASIA
     Route: 048
     Dates: start: 20030530, end: 20040413

REACTIONS (3)
  - BREAST CANCER [None]
  - BREAST MASS [None]
  - GYNAECOMASTIA [None]
